FAERS Safety Report 4577002-8 (Version None)
Quarter: 2005Q1

REPORT INFORMATION
  Report Type: 
  Country: None (occurrence: None)
  Receive Date: 20050208
  Receipt Date: 20050125
  Transmission Date: 20050727
  Serious: Yes (Other)
  Sender: FDA-Public Use
  Company Number: 2005020502

PATIENT
  Age: 27 Year
  Sex: Male
  Weight: 81.6475 kg

DRUGS (1)
  1. ZOLOFT [Suspect]
     Indication: ANXIETY
     Dosage: 25 MG, ORAL
     Route: 048
     Dates: start: 20040101, end: 20040101

REACTIONS (11)
  - APNOEA [None]
  - CERVICAL SPASM [None]
  - DEPRESSED LEVEL OF CONSCIOUSNESS [None]
  - DYSKINESIA [None]
  - HEADACHE [None]
  - MENTAL STATUS CHANGES [None]
  - MOVEMENT DISORDER [None]
  - MUSCLE TWITCHING [None]
  - MYOTONIA [None]
  - PHARYNGOLARYNGEAL PAIN [None]
  - RESPIRATORY RATE DECREASED [None]
